FAERS Safety Report 6327894-7 (Version None)
Quarter: 2009Q3

REPORT INFORMATION
  Report Type: 
  Country: None (occurrence: None)
  Receive Date: 20090825
  Receipt Date: 20080814
  Transmission Date: 20100115
  Serious: No
  Sender: FDA-Public Use
  Company Number: US-ABBOTT-08P-163-0440420-00

PATIENT
  Sex: Female
  Weight: 59.02 kg

DRUGS (3)
  1. SYNTHROID [Suspect]
     Indication: HYPOTHYROIDISM
     Route: 048
     Dates: start: 20080205
  2. SYNTHROID [Suspect]
     Dosage: 75 MCG + 0.5 PILL DAILY
  3. SYNTHROID [Suspect]
     Dates: start: 20080201

REACTIONS (3)
  - ALOPECIA [None]
  - RASH [None]
  - RASH PRURITIC [None]
